FAERS Safety Report 8613202-5 (Version None)
Quarter: 2012Q3

REPORT INFORMATION
  Report Type: 
  Country: None (occurrence: None)
  Receive Date: 20120822
  Receipt Date: 20120814
  Transmission Date: 20120928
  Serious: Yes (Death, Other)
  Sender: FDA-Public Use
  Company Number: VN-BAXTER-2012BAX014510

PATIENT
  Age: 33 Year
  Sex: Male

DRUGS (3)
  1. DIANEAL [Suspect]
     Dosage: 2 BAGS/DAY
     Route: 033
     Dates: start: 20120326, end: 20120801
  2. DIANEAL [Suspect]
     Dosage: 2 BAGS/DAY
     Route: 033
     Dates: start: 20120326, end: 20120801
  3. DIANEAL [Suspect]
     Dates: start: 20120326

REACTIONS (3)
  - APHAGIA [None]
  - BLOOD ALBUMIN ABNORMAL [None]
  - MALNUTRITION [None]
